FAERS Safety Report 8249461-0 (Version None)
Quarter: 2012Q2

REPORT INFORMATION
  Report Type: 
  Country: None (occurrence: None)
  Receive Date: 20120402
  Receipt Date: 20120327
  Transmission Date: 20120825
  Serious: Yes (Other)
  Sender: FDA-Public Use
  Company Number: US-AMGEN-USASP2011041115

PATIENT
  Age: 76 Year
  Sex: Female
  Weight: 50.34 kg

DRUGS (12)
  1. LIPITOR [Concomitant]
  2. CALCIUM CITRATE + D [Concomitant]
  3. LUTEIN                             /01638501/ [Concomitant]
  4. HYDROCHLOROTHIAZIDE [Concomitant]
     Dosage: 12.5 MG, UNK
     Dates: start: 20100329
  5. SYMBICORT [Concomitant]
  6. SPIRIVA [Concomitant]
  7. PROLIA [Suspect]
     Indication: OSTEOPOROSIS POSTMENOPAUSAL
     Dosage: 60 MG, Q6MO
     Route: 058
     Dates: start: 20110527, end: 20110707
  8. CALCIUM CITRATE [Concomitant]
  9. CENTRUM SILVER                     /01292501/ [Concomitant]
  10. FOSAMAX [Concomitant]
  11. ALBUTEROL [Concomitant]
  12. FORTEO [Concomitant]

REACTIONS (5)
  - VULVOVAGINAL BURNING SENSATION [None]
  - VITAMIN D DEFICIENCY [None]
  - PRURITUS [None]
  - SQUAMOUS CELL CARCINOMA OF SKIN [None]
  - MACULAR OEDEMA [None]
